FAERS Safety Report 9591920 (Version 1)
Quarter: 2013Q4

REPORT INFORMATION
  Report Type: Spontaneous
  Country: RU (occurrence: RU)
  Receive Date: 20131004
  Receipt Date: 20131004
  Transmission Date: 20140711
  Serious: Yes (Hospitalization)
  Sender: FDA-Public Use
  Company Number: RU-AMGEN-RUSSP2013067567

PATIENT
  Age: 34 Year
  Sex: Female
  Weight: 100.5 kg

DRUGS (13)
  1. MIMPARA [Suspect]
     Indication: HYPERPARATHYROIDISM SECONDARY
     Dosage: 30 MG, QD
     Route: 048
     Dates: start: 201205
  2. MIRCERA [Concomitant]
     Indication: ANAEMIA
     Dosage: 52 MUG, 3 TIMES/WK
     Route: 042
     Dates: start: 201203
  3. COSMOFER [Concomitant]
     Indication: ANAEMIA
     Dosage: 700 MG, QMO
     Route: 042
     Dates: start: 201203
  4. BISOPROLOL [Concomitant]
     Indication: HYPERTENSION
     Dosage: 2.5 MG, QD
     Route: 048
     Dates: start: 201203
  5. OMEPRAZOL                          /00661201/ [Concomitant]
     Dosage: 20 MG, QD
  6. ALFACALCIDOL [Concomitant]
     Dosage: 4.5 MG, QWK
     Dates: start: 201203
  7. CALCIUM CARBONATE [Concomitant]
     Dosage: 2.5 G, QD
     Route: 048
  8. FOLIC ACID [Concomitant]
     Dosage: 1 MG, BID
     Route: 048
  9. UNDEVIT                            /07486201/ [Concomitant]
  10. CONCOR [Concomitant]
     Dosage: 2.5 MG, UNK
  11. TROMBO ASS [Concomitant]
     Dosage: 100 MG, UNK
  12. CIFRAN                             /00697201/ [Concomitant]
     Dosage: 500 MG, UNK
  13. BINOCRIT [Concomitant]
     Dosage: 6000 UNIT, UNK

REACTIONS (11)
  - Gastrointestinal haemorrhage [Recovering/Resolving]
  - Duodenal ulcer haemorrhage [Unknown]
  - Gastrooesophageal sphincter insufficiency [Unknown]
  - Duodenitis [Unknown]
  - Faeces discoloured [Unknown]
  - Asthenia [Unknown]
  - Gastrointestinal malformation [Unknown]
  - Gastritis erosive [Unknown]
  - Gastrooesophageal reflux disease [Unknown]
  - Nausea [Unknown]
  - Vomiting [Unknown]
